FAERS Safety Report 7206092-9 (Version None)
Quarter: 2011Q1

REPORT INFORMATION
  Report Type: 
  Country: None (occurrence: None)
  Receive Date: 20110103
  Receipt Date: 20101220
  Transmission Date: 20110831
  Serious: Yes (Life-Threatening, Hospitalization, Other)
  Sender: FDA-Public Use
  Company Number: US-ELI_LILLY_AND_COMPANY-US201011005444

PATIENT
  Sex: Female
  Weight: 77.551 kg

DRUGS (2)
  1. FORTEO [Suspect]
     Indication: OSTEOPOROSIS
     Dosage: 20 UG, DAILY (1/D)
  2. VERAPAMIL [Concomitant]

REACTIONS (4)
  - OSTEONECROSIS [None]
  - HUMERUS FRACTURE [None]
  - RESPIRATORY DEPRESSION [None]
  - FALL [None]
